FAERS Safety Report 18221858 (Version 1)
Quarter: 2020Q3

REPORT INFORMATION
  Report Type: Spontaneous
  Country: US (occurrence: US)
  Receive Date: 20200901
  Receipt Date: 20200901
  Transmission Date: 20201103
  Serious: Yes (Other)
  Sender: FDA-Public Use
  Company Number: None

PATIENT
  Age: 4 Year
  Sex: Female
  Weight: 17.33 kg

DRUGS (5)
  1. PEPCID [Concomitant]
     Active Substance: FAMOTIDINE
  2. GUANFACINE. [Concomitant]
     Active Substance: GUANFACINE
  3. MAGNESIUM CITRATE. [Concomitant]
     Active Substance: MAGNESIUM CITRATE
  4. FIBER GUMMIES VITAMIN C [Concomitant]
  5. PURELAX [Suspect]
     Active Substance: POLYETHYLENE GLYCOL 3350
     Indication: CONSTIPATION
     Dosage: ?          QUANTITY:8.3 OUNCE(S);?
     Route: 048
     Dates: start: 20180715, end: 20200824

REACTIONS (6)
  - Sensory disturbance [None]
  - Pica [None]
  - Abnormal behaviour [None]
  - Mood swings [None]
  - Tic [None]
  - Anxiety [None]

NARRATIVE: CASE EVENT DATE: 20200815
